FAERS Safety Report 9319033 (Version 2)
Quarter: 2013Q3

REPORT INFORMATION
  Report Type: Spontaneous
  Country: GB (occurrence: GB)
  Receive Date: 20130530
  Receipt Date: 20130715
  Transmission Date: 20140515
  Serious: Yes (Hospitalization)
  Sender: FDA-Public Use
  Company Number: GB-ELI_LILLY_AND_COMPANY-GB201305005685

PATIENT
  Age: 15 Year
  Sex: Male
  Weight: 55 kg

DRUGS (3)
  1. STRATTERA [Suspect]
     Indication: ATTENTION DEFICIT/HYPERACTIVITY DISORDER
     Dosage: 80 MG, QD
     Route: 048
  2. STRATTERA [Suspect]
     Indication: AUTISM
  3. METHYLPHENIDATE [Concomitant]

REACTIONS (3)
  - Self injurious behaviour [Unknown]
  - Suicide attempt [Unknown]
  - Aggression [Unknown]
